FAERS Safety Report 4614756-6 (Version None)
Quarter: 2005Q2

REPORT INFORMATION
  Report Type: 
  Country: None (occurrence: None)
  Receive Date: 20050311
  Receipt Date: 20041109
  Transmission Date: 20051028
  Serious: No
  Sender: FDA-Public Use
  Company Number: 2004-BP-11640BP

PATIENT
  Age: 75 Year
  Sex: Male
  Weight: 67.1 kg

DRUGS (10)
  1. SPIRIVA [Suspect]
     Indication: CHRONIC OBSTRUCTIVE PULMONARY DISEASE
     Dosage: 18 MCG (18 MCG, 1 IN 1 D), IH
     Route: 055
     Dates: start: 20041021, end: 20041101
  2. VITOPEX [Concomitant]
  3. ALBUTEROL [Concomitant]
  4. CADVET [Concomitant]
  5. SINGULAIR (MONTELUKAST) [Concomitant]
  6. PREVACID (LANSOPRAZOLE)Q [Concomitant]
  7. ADVAIR DISKUS 100/50 [Concomitant]
  8. RESTORIL [Concomitant]
  9. XANAX [Concomitant]
  10. VICODIN (VIDODIN) [Concomitant]

REACTIONS (1)
  - RASH ERYTHEMATOUS [None]
